FAERS Safety Report 17356446 (Version 2)
Quarter: 2020Q1

REPORT INFORMATION
  Report Type: Report from Study
  Country: None (occurrence: CH)
  Receive Date: 20200131
  Receipt Date: 20200310
  Transmission Date: 20200409
  Serious: Yes (Hospitalization, Other)
  Sender: FDA-Public Use
  Company Number: CH-ABBVIE-20P-151-3238559-00

PATIENT
  Age: 75 Year
  Sex: Male
  Weight: 82 kg

DRUGS (22)
  1. PREDNISOLONE. [Suspect]
     Active Substance: PREDNISOLONE
     Route: 048
     Dates: start: 20191112, end: 20191125
  2. PREDNISOLONE. [Suspect]
     Active Substance: PREDNISOLONE
     Route: 048
     Dates: start: 20191126, end: 20191209
  3. PREDNISOLONE. [Suspect]
     Active Substance: PREDNISOLONE
     Route: 048
     Dates: start: 20200107
  4. PREDNISOLONE. [Suspect]
     Active Substance: PREDNISOLONE
     Indication: TEMPORAL ARTERITIS
     Dosage: DOSING: DOSE TAPERED PER 26-WK CORTICOSTEROID TAPER SCHEDULE
     Route: 048
     Dates: start: 20190618, end: 20191014
  5. PREDNISOLONE. [Suspect]
     Active Substance: PREDNISOLONE
     Route: 048
     Dates: start: 20191231, end: 20200106
  6. TAMSULOSIN [Concomitant]
     Active Substance: TAMSULOSIN
     Indication: PROSTATIC DISORDER
     Route: 048
     Dates: start: 20190925
  7. UROREC [Concomitant]
     Active Substance: SILODOSIN
     Indication: PROSTATIC DISORDER
     Route: 048
     Dates: start: 20191001
  8. PREDNISOLONE. [Suspect]
     Active Substance: PREDNISOLONE
     Route: 048
     Dates: start: 20191022, end: 20191028
  9. PREDNISOLONE. [Suspect]
     Active Substance: PREDNISOLONE
     Route: 048
     Dates: start: 20191210, end: 20191216
  10. CHININSULFAT HAENSELER [Concomitant]
     Active Substance: QUININE SULFATE
     Indication: MUSCLE SPASMS
     Route: 048
     Dates: start: 201904
  11. PREDNISOLONE. [Suspect]
     Active Substance: PREDNISOLONE
     Route: 048
     Dates: start: 20191224, end: 20191230
  12. CALCIMAGON D3 FORTE [Concomitant]
     Indication: OSTEOPOROSIS PROPHYLAXIS
     Route: 048
     Dates: start: 20190520
  13. PANTOZOL [Concomitant]
     Active Substance: PANTOPRAZOLE SODIUM
     Indication: PROPHYLAXIS
     Route: 048
     Dates: start: 20190501
  14. PREDNISOLONE. [Suspect]
     Active Substance: PREDNISOLONE
     Route: 048
     Dates: start: 20191217, end: 20191223
  15. PERINDOPRIL AMLODIPIN MEPHA [Concomitant]
     Indication: HYPERTENSION
     Dosage: DOSE: 5/10 MG
     Route: 048
     Dates: start: 201802
  16. ASPIRIN CARDIO [Concomitant]
     Active Substance: ASPIRIN
     Indication: TEMPORAL ARTERITIS
     Route: 048
     Dates: start: 20190418
  17. UPADACITINIB [Suspect]
     Active Substance: UPADACITINIB
     Indication: TEMPORAL ARTERITIS
     Route: 048
     Dates: start: 20190528, end: 20200116
  18. PREDNISOLONE. [Suspect]
     Active Substance: PREDNISOLONE
     Route: 048
     Dates: start: 20191015, end: 20191021
  19. PREDNISOLONE. [Suspect]
     Active Substance: PREDNISOLONE
     Route: 048
     Dates: start: 20191105, end: 20191111
  20. SPIRIVA [Concomitant]
     Active Substance: TIOTROPIUM BROMIDE MONOHYDRATE
     Indication: CHRONIC OBSTRUCTIVE PULMONARY DISEASE
     Route: 055
     Dates: start: 20190314
  21. PREDNISOLONE. [Suspect]
     Active Substance: PREDNISOLONE
     Indication: TEMPORAL ARTERITIS
     Route: 048
     Dates: start: 20190529, end: 20190617
  22. PREDNISOLONE. [Suspect]
     Active Substance: PREDNISOLONE
     Route: 048
     Dates: start: 20191029, end: 20191104

REACTIONS (2)
  - Pneumocystis jirovecii pneumonia [Not Recovered/Not Resolved]
  - Tongue neoplasm malignant stage unspecified [Not Recovered/Not Resolved]

NARRATIVE: CASE EVENT DATE: 20200109
